FAERS Safety Report 18606505 (Version 2)
Quarter: 2020Q4

REPORT INFORMATION
  Report Type: Spontaneous
  Country: ES (occurrence: ES)
  Receive Date: 20201211
  Receipt Date: 20201216
  Transmission Date: 20210114
  Serious: Yes (Death, Hospitalization, Other)
  Sender: FDA-Public Use
  Company Number: ES-MALLINCKRODT-T202005786

PATIENT

DRUGS (1)
  1. UVADEX [Suspect]
     Active Substance: METHOXSALEN
     Indication: KIDNEY TRANSPLANT REJECTION
     Dosage: 2 WEEKLY SESSIONS FOR 5 WEEKS, EXTRACORPOREAL
     Route: 050

REACTIONS (8)
  - Pyrexia [Unknown]
  - Anaemia [Unknown]
  - Product use in unapproved indication [Unknown]
  - Cardiovascular disorder [Fatal]
  - Urinary tract infection [Unknown]
  - Arteriovenous fistula thrombosis [Unknown]
  - Thrombosis in device [Unknown]
  - Therapy non-responder [Unknown]
